FAERS Safety Report 11359396 (Version 1)
Quarter: 2015Q3

REPORT INFORMATION
  Report Type: Spontaneous
  Country: US (occurrence: None)
  Receive Date: 20150807
  Receipt Date: 20150807
  Transmission Date: 20151125
  Serious: Yes (Disabling)
  Sender: FDA-Public Use
  Company Number: None

PATIENT
  Age: 40 Year
  Sex: Male
  Weight: 113.4 kg

DRUGS (5)
  1. TAURINE [Concomitant]
     Active Substance: TAURINE
  2. WELLBUTRIN [Suspect]
     Active Substance: BUPROPION HYDROCHLORIDE
  3. ZYPREXA [Concomitant]
     Active Substance: OLANZAPINE
  4. FISH OIL [Concomitant]
     Active Substance: FISH OIL
  5. ABILIFY [Suspect]
     Active Substance: ARIPIPRAZOLE
     Indication: PSYCHOTIC DISORDER
     Dosage: 1 PILL
     Route: 048
     Dates: start: 20020617, end: 20141021

REACTIONS (1)
  - Multiple chemical sensitivity [None]

NARRATIVE: CASE EVENT DATE: 201410
